FAERS Safety Report 9144000 (Version 1)
Quarter: 2013Q1

REPORT INFORMATION
  Report Type: Spontaneous
  Country: FR (occurrence: FR)
  Receive Date: 20130306
  Receipt Date: 20130306
  Transmission Date: 20140127
  Serious: Yes (Hospitalization)
  Sender: FDA-Public Use
  Company Number: FR-PFIZER INC-2013077571

PATIENT
  Age: 66 Year
  Sex: Female

DRUGS (3)
  1. ONDANSETRON HCL [Suspect]
     Indication: PREMEDICATION
     Dosage: UNK
     Route: 042
     Dates: start: 20130130, end: 20130130
  2. OXALIPLATIN [Suspect]
     Indication: CHOLANGIOCARCINOMA
     Dosage: UNK
     Route: 042
     Dates: start: 20130130, end: 20130130
  3. DEXAMETHASONE SODIUM PHOSPHATE [Suspect]
     Indication: PREMEDICATION
     Dosage: UNK
     Route: 042
     Dates: start: 20130130, end: 20130130

REACTIONS (2)
  - Hypersensitivity [Recovered/Resolved]
  - Erythema [Recovered/Resolved]
